FAERS Safety Report 17692542 (Version 1)
Quarter: 2020Q2

REPORT INFORMATION
  Report Type: Spontaneous
  Country: US (occurrence: US)
  Receive Date: 20200421
  Receipt Date: 20200421
  Transmission Date: 20200714
  Serious: Yes (Life-Threatening, Hospitalization, Disabling, Other)
  Sender: FDA-Public Use
  Company Number: None

PATIENT
  Age: 46 Year
  Sex: Male
  Weight: 94.5 kg

DRUGS (4)
  1. FINASTERIDE. [Suspect]
     Active Substance: FINASTERIDE
     Indication: ANDROGENETIC ALOPECIA
     Dosage: ?          QUANTITY:1 TABLET(S);?
     Route: 048
  2. ICD IMPLANT ATORVASTATIN [Concomitant]
  3. BABY ASPIRIN [Concomitant]
     Active Substance: ASPIRIN
  4. METOPROLOL SUCCINATE. [Concomitant]
     Active Substance: METOPROLOL SUCCINATE

REACTIONS (11)
  - Libido decreased [None]
  - Ejaculation disorder [None]
  - Sudden cardiac death [None]
  - Bradycardia [None]
  - Body temperature fluctuation [None]
  - Depression [None]
  - Sleep disorder [None]
  - Personality change [None]
  - Erectile dysfunction [None]
  - Feeling abnormal [None]
  - Antisocial behaviour [None]

NARRATIVE: CASE EVENT DATE: 20200306
